FAERS Safety Report 6711429-0 (Version None)
Quarter: 2010Q2

REPORT INFORMATION
  Report Type: 
  Country: None (occurrence: None)
  Receive Date: 20100504
  Receipt Date: 20100504
  Transmission Date: 20101027
  Serious: Yes (Hospitalization)
  Sender: FDA-Public Use
  Company Number: None

PATIENT
  Sex: Female
  Weight: 65.5 kg

DRUGS (3)
  1. CARBOPLATIN [Suspect]
     Dosage: 1188 MG
     Dates: end: 20100415
  2. ERBITUX [Suspect]
     Dosage: 2340 MG
     Dates: end: 20100422
  3. TAXOL [Suspect]
     Dosage: 668 MG
     Dates: end: 20100415

REACTIONS (2)
  - CHILLS [None]
  - FEBRILE NEUTROPENIA [None]
